FAERS Safety Report 13972835 (Version 1)
Quarter: 2017Q3

REPORT INFORMATION
  Report Type: Spontaneous
  Country: US (occurrence: None)
  Receive Date: 20170914
  Receipt Date: 20170914
  Transmission Date: 20171128
  Serious: Yes (Death)
  Sender: FDA-Public Use
  Company Number: None

PATIENT
  Age: 58 Year
  Sex: Male

DRUGS (1)
  1. ETOPOSIDE CAP 50MG [Suspect]
     Active Substance: ETOPOSIDE

REACTIONS (1)
  - Death [None]

NARRATIVE: CASE EVENT DATE: 20170912
